FAERS Safety Report 6131295-4 (Version None)
Quarter: 2009Q1

REPORT INFORMATION
  Report Type: 
  Country: None (occurrence: None)
  Receive Date: 20090325
  Receipt Date: 20080417
  Transmission Date: 20090719
  Serious: Yes (Life-Threatening, Other)
  Sender: FDA-Public Use
  Company Number: US-BRISTOL-MYERS SQUIBB COMPANY-14105340

PATIENT
  Age: 56 Year
  Sex: Male

DRUGS (3)
  1. ERBITUX [Suspect]
     Indication: COLORECTAL CANCER
     Dosage: FIRST TIME LOADING DOSE 400MG/M2, DURATION 30 MIN OR LESS
     Route: 042
     Dates: start: 20071116, end: 20071116
  2. ERBITUX [Suspect]
     Indication: METASTASES TO LIVER
     Dosage: FIRST TIME LOADING DOSE 400MG/M2, DURATION 30 MIN OR LESS
     Route: 042
     Dates: start: 20071116, end: 20071116
  3. ERBITUX [Suspect]
     Indication: METASTASES TO LUNG
     Dosage: FIRST TIME LOADING DOSE 400MG/M2, DURATION 30 MIN OR LESS
     Route: 042
     Dates: start: 20071116, end: 20071116

REACTIONS (3)
  - BRADYCARDIA [None]
  - CIRCULATORY COLLAPSE [None]
  - CONVULSION [None]
